FAERS Safety Report 10687623 (Version 1)
Quarter: 2014Q4

REPORT INFORMATION
  Report Type: Spontaneous
  Country: US (occurrence: None)
  Receive Date: 20141230
  Receipt Date: 20141230
  Transmission Date: 20150529
  Serious: Yes (Other)
  Sender: FDA-Public Use
  Company Number: 2014NUEUSA00416

PATIENT
  Sex: Female

DRUGS (1)
  1. NUEDEXTA [Suspect]
     Active Substance: DEXTROMETHORPHAN HYDROBROMIDE\QUINIDINE SULFATE
     Indication: INAPPROPRIATE AFFECT
     Dosage: 1 CAP
     Dates: start: 20141215

REACTIONS (7)
  - Hypoaesthesia [None]
  - Thinking abnormal [None]
  - Syncope [None]
  - Labyrinthitis [None]
  - Gait disturbance [None]
  - Dizziness [None]
  - Speech disorder [None]

NARRATIVE: CASE EVENT DATE: 201412
